FAERS Safety Report 13131218 (Version 1)
Quarter: 2017Q1

REPORT INFORMATION
  Report Type: Spontaneous
  Country: SI (occurrence: SI)
  Receive Date: 20170119
  Receipt Date: 20170119
  Transmission Date: 20170428
  Serious: Yes (Life-Threatening)
  Sender: FDA-Public Use
  Company Number: SI-NOVOPROD-527216

PATIENT
  Age: 60 Year
  Sex: Male

DRUGS (1)
  1. VICTOZA [Suspect]
     Active Substance: LIRAGLUTIDE
     Indication: TYPE 2 DIABETES MELLITUS
     Dosage: UNK
     Route: 058
     Dates: end: 20161101

REACTIONS (2)
  - Intentional overdose [Unknown]
  - Small intestine carcinoma metastatic [Unknown]

NARRATIVE: CASE EVENT DATE: 20161101
